FAERS Safety Report 8474876-5 (Version None)
Quarter: 2012Q2

REPORT INFORMATION
  Report Type: 
  Country: None (occurrence: None)
  Receive Date: 20120628
  Receipt Date: 20120620
  Transmission Date: 20120825
  Serious: Yes (Hospitalization)
  Sender: FDA-Public Use
  Company Number: FR-B.I. PHARMACEUTICALS,INC./RIDGEFIELD-2012-FF-00797FF

PATIENT
  Sex: Male

DRUGS (7)
  1. PRADAXA [Suspect]
     Indication: ATRIAL FIBRILLATION
     Dosage: 220 MG
     Route: 048
     Dates: start: 20120426, end: 20120501
  2. ATACAND [Concomitant]
  3. AMLODIPINE BESYLATE [Concomitant]
  4. LASIX [Concomitant]
     Dosage: 80 MG
  5. NEBIVOLOL HCL [Concomitant]
     Dosage: 5 MG
  6. CORDARONE [Concomitant]
  7. DIGOXIN [Concomitant]

REACTIONS (2)
  - ISCHAEMIA [None]
  - THROMBOSIS [None]
